FAERS Safety Report 5590706-3 (Version None)
Quarter: 2008Q1

REPORT INFORMATION
  Report Type: 
  Country: None (occurrence: None)
  Receive Date: 20080114
  Receipt Date: 20071117
  Transmission Date: 20080703
  Serious: Yes (Other)
  Sender: FDA-Public Use
  Company Number: SE-PFIZER INC-2007080824

PATIENT
  Sex: Male

DRUGS (6)
  1. PREDNISOLONE [Suspect]
     Indication: POLYMYALGIA RHEUMATICA
     Route: 048
  2. PREDNISOLONE [Suspect]
     Dosage: DAILY DOSE:40MG
  3. OMEPRAZOLE [Concomitant]
  4. ALENDRONIC ACID [Concomitant]
  5. ATENOLOL [Concomitant]
  6. ENALAPRIL MALEATE [Concomitant]

REACTIONS (5)
  - DIZZINESS [None]
  - FALL [None]
  - FATIGUE [None]
  - HYPERHIDROSIS [None]
  - VISUAL DISTURBANCE [None]
